FAERS Safety Report 23092681 (Version 1)
Quarter: 2023Q4

REPORT INFORMATION
  Report Type: Spontaneous
  Country: CA (occurrence: CA)
  Receive Date: 20231021
  Receipt Date: 20231021
  Transmission Date: 20240110
  Serious: Yes (Hospitalization)
  Sender: FDA-Public Use
  Company Number: CA-TEVA-2023-CA-2936020

PATIENT
  Age: 86 Year
  Sex: Male

DRUGS (1)
  1. PREDNISONE [Suspect]
     Active Substance: PREDNISONE
     Indication: Product used for unknown indication
     Route: 065

REACTIONS (6)
  - Confusional state [Unknown]
  - Cough [Unknown]
  - Delirium [Unknown]
  - Insomnia [Unknown]
  - Irregular sleep wake rhythm disorder [Unknown]
  - Patient elopement [Unknown]
